FAERS Safety Report 7893610-0 (Version None)
Quarter: 2011Q4

REPORT INFORMATION
  Report Type: 
  Country: None (occurrence: None)
  Receive Date: 20111104
  Receipt Date: 20111026
  Transmission Date: 20120403
  Serious: Yes (Other)
  Sender: FDA-Public Use
  Company Number: US-GLAXOSMITHKLINE-A0950920A

PATIENT
  Age: 69 Year
  Sex: Female

DRUGS (1)
  1. PROMACTA [Suspect]
     Indication: LYMPHOMA
     Dosage: 75MG PER DAY
     Route: 048
     Dates: start: 20110817

REACTIONS (3)
  - NAIL DISCOLOURATION [None]
  - OCULAR ICTERUS [None]
  - YELLOW SKIN [None]
